FAERS Safety Report 4484345-5 (Version None)
Quarter: 2004Q4

REPORT INFORMATION
  Report Type: 
  Country: None (occurrence: None)
  Receive Date: 20041025
  Receipt Date: 20041014
  Transmission Date: 20050328
  Serious: Yes (Other)
  Sender: FDA-Public Use
  Company Number: FR-BRISTOL-MYERS SQUIBB COMPANY-12731436

PATIENT
  Age: 70 Year
  Sex: Male

DRUGS (1)
  1. FLUPHENAZINE [Suspect]
     Dosage: DURATION OF THERAPY:  A FEW YEARS
     Route: 030

REACTIONS (1)
  - CARDIOMYOPATHY [None]
